FAERS Safety Report 4841770-8 (Version None)
Quarter: 2005Q4

REPORT INFORMATION
  Report Type: 
  Country: None (occurrence: None)
  Receive Date: 20051130
  Receipt Date: 20051123
  Transmission Date: 20060501
  Serious: Yes (Hospitalization)
  Sender: FDA-Public Use
  Company Number: AU-ROCHE-425925

PATIENT
  Age: 56 Year
  Sex: Female

DRUGS (2)
  1. XELODA [Suspect]
     Route: 048
  2. TAXOTERE [Suspect]
     Dosage: 3 TIMES.
     Route: 042

REACTIONS (2)
  - INFECTION [None]
  - MUCOSAL INFLAMMATION [None]
